FAERS Safety Report 7685466-6 (Version None)
Quarter: 2011Q3

REPORT INFORMATION
  Report Type: 
  Country: None (occurrence: None)
  Receive Date: 20110816
  Receipt Date: 20110808
  Transmission Date: 20111222
  Serious: Yes (Other)
  Sender: FDA-Public Use
  Company Number: DE-JNJFOC-20110707079

PATIENT
  Age: 42 Year
  Sex: Female

DRUGS (3)
  1. MINOXIDIL [Suspect]
     Route: 061
  2. LEVOTHYROXINE SODIUM [Concomitant]
     Indication: THYROID DISORDER
  3. MINOXIDIL [Suspect]
     Indication: ALOPECIA
     Route: 061

REACTIONS (3)
  - MATERNAL EXPOSURE DURING PREGNANCY [None]
  - ABORTION SPONTANEOUS [None]
  - WRONG DRUG ADMINISTERED [None]
